FAERS Safety Report 8809433 (Version 2)
Quarter: 2012Q4

REPORT INFORMATION
  Report Type: 
  Country: US (occurrence: US)
  Receive Date: 20120926
  Receipt Date: 20121204
  Transmission Date: 20130627
  Serious: Yes (Other)
  Sender: FDA-Public Use
  Company Number: US-ROCHE-1129230

PATIENT
  Sex: Female

DRUGS (15)
  1. AVASTIN [Suspect]
     Indication: BREAST CANCER FEMALE
     Route: 065
     Dates: start: 20051028
  2. AVASTIN [Suspect]
     Route: 065
     Dates: start: 20051111
  3. AVASTIN [Suspect]
     Route: 042
     Dates: start: 20050903, end: 20070808
  4. HERCEPTIN [Suspect]
     Indication: BREAST CANCER FEMALE
     Route: 065
     Dates: start: 20040804
  5. XELODA [Suspect]
     Indication: BREAST CANCER FEMALE
     Route: 065
     Dates: start: 20040804
  6. CARBOPLATIN [Concomitant]
     Route: 065
     Dates: start: 20040804
  7. TAXOTERE [Concomitant]
     Route: 065
     Dates: start: 20040804
  8. ZOMETA [Concomitant]
     Route: 065
     Dates: start: 20040804
  9. TOPOTECAN [Concomitant]
  10. IRINOTECAN [Concomitant]
  11. OXALIPLATIN [Concomitant]
  12. LEUCOVORIN [Concomitant]
  13. 5-FU [Concomitant]
  14. CALCIUM [Concomitant]
  15. MAGNESIUM SULFATE [Concomitant]

REACTIONS (1)
  - Disease progression [Unknown]
